FAERS Safety Report 4874406-0 (Version None)
Quarter: 2006Q1

REPORT INFORMATION
  Report Type: 
  Country: None (occurrence: None)
  Receive Date: 20060104
  Receipt Date: 20051220
  Transmission Date: 20060701
  Serious: Yes (Death)
  Sender: FDA-Public Use
  Company Number: 2005126104

PATIENT
  Age: 71 Year
  Sex: Male
  Weight: 74.8435 kg

DRUGS (4)
  1. NORVASC [Suspect]
     Indication: HYPERTENSION
     Dosage: 5 MG (5 MG, 1 IN 1 D), ORAL
     Route: 048
     Dates: start: 20010301, end: 20050401
  2. LIPITOR [Suspect]
     Indication: HYPERLIPIDAEMIA
     Dosage: 10 MG (10 MG, 1 IN1 D), ORAL
     Route: 048
     Dates: start: 20040401, end: 20050401
  3. ANTIHYPERTENSIVES (ANTIHYPERTENSIVES) [Concomitant]
  4. LOTENSIN HCT (BENAZEPRIL HYDROCHLORIDE, HYDROCHLOROTHIAZIDE) [Concomitant]

REACTIONS (2)
  - HYPERLIPIDAEMIA [None]
  - LUNG NEOPLASM MALIGNANT [None]
